FAERS Safety Report 5596056-3 (Version None)
Quarter: 2008Q1

REPORT INFORMATION
  Report Type: 
  Country: None (occurrence: None)
  Receive Date: 20080118
  Receipt Date: 20080107
  Transmission Date: 20080703
  Serious: Yes (Life-Threatening)
  Sender: FDA-Public Use
  Company Number: FR-ROCHE-540361

PATIENT
  Age: 12 Month
  Sex: Female
  Weight: 10 kg

DRUGS (2)
  1. VALIUM [Suspect]
     Indication: FEBRILE CONVULSION
     Dosage: DRUG NAME: VALIUM 10 ROCHE.
     Route: 054
     Dates: start: 20071211, end: 20071211
  2. GARDENAL [Suspect]
     Indication: FEBRILE CONVULSION
     Dosage: FREQUENCY: ONCE. FORM: INJECTABLE SOLUTION.
     Route: 042
     Dates: start: 20071211

REACTIONS (1)
  - APNOEA [None]
